FAERS Safety Report 9629303 (Version 9)
Quarter: 2018Q4

REPORT INFORMATION
  Report Type: Spontaneous
  Country: DE (occurrence: DE)
  Receive Date: 20131025
  Receipt Date: 20180903
  Transmission Date: 20190205
  Serious: Yes (Congenital Anomaly)
  Sender: FDA-Public Use
  Company Number: DE-PFIZER INC-2013294530

PATIENT
  Sex: Male
  Weight: 2.52 kg

DRUGS (6)
  1. FOLSAEURE [Concomitant]
     Active Substance: FOLIC ACID
     Indication: PROPHYLAXIS OF NEURAL TUBE DEFECT
     Dosage: 0.8 MG ONCE DAILY; 5. - 12. GESTATIONAL WEEK
     Route: 064
  2. RAMIPRIL. [Suspect]
     Active Substance: RAMIPRIL
     Indication: HYPERTENSION
     Dosage: 0. - 4.5. GESTATIONAL WEEK (GW 0-4+5)
     Route: 064
     Dates: start: 20090820, end: 20090922
  3. OBSIDAN (PROPRANOLOL HYDROCHLORIDE) [Suspect]
     Active Substance: PROPRANOLOL HYDROCHLORIDE
     Indication: HYPERTENSION
     Dosage: 25 MG, 2X/DAY (GW 0-33+4)
     Route: 064
     Dates: start: 20090820, end: 20100412
  4. UTROGEST [Suspect]
     Active Substance: PROGESTERONE
     Indication: ABORTION THREATENED
     Dosage: 100 MG, DAILY; 11. - 14. GESTATIONAL WEEK (GW 11-14)
     Route: 064
     Dates: start: 20091105, end: 20091126
  5. DOPEGYT [Suspect]
     Active Substance: METHYLDOPA
     Indication: HYPERTENSION
     Dosage: 250 MG, DAILY (GW 4+5-33+4)
     Route: 064
     Dates: end: 20090922
  6. DOPEGYT [Suspect]
     Active Substance: METHYLDOPA
     Dosage: 1500 MG, DAILY (SHORTLY BEFORE BIRTH: 6X250MG
     Route: 064
     Dates: start: 20090922, end: 20100412

REACTIONS (7)
  - Maternal exposure during pregnancy [Not Recovered/Not Resolved]
  - Premature baby [Not Recovered/Not Resolved]
  - Pyelocaliectasis [Not Recovered/Not Resolved]
  - Ureteric dilatation [Not Recovered/Not Resolved]
  - Ureteric stenosis [Not Recovered/Not Resolved]
  - Respiratory disorder [Unknown]
  - Congenital hydronephrosis [Not Recovered/Not Resolved]

NARRATIVE: CASE EVENT DATE: 2010
